FAERS Safety Report 9671756 (Version 5)
Quarter: 2014Q1

REPORT INFORMATION
  Report Type: Report from Study
  Country: US (occurrence: US)
  Receive Date: 20131106
  Receipt Date: 20140219
  Transmission Date: 20141002
  Serious: Yes (Death, Hospitalization, Other)
  Sender: FDA-Public Use
  Company Number: US-SA-2013SA109182

PATIENT
  Age: 67 Year
  Sex: Female

DRUGS (2)
  1. AUBAGIO [Suspect]
     Indication: MULTIPLE SCLEROSIS
     Dosage: STARTED AUBAGIO ABOUT 5 MONTHS AGO
     Route: 048
     Dates: start: 20130413, end: 20131031
  2. METHOTREXATE [Suspect]
     Route: 065
     Dates: start: 20131009

REACTIONS (9)
  - Death [Fatal]
  - Multi-organ failure [Unknown]
  - Condition aggravated [Unknown]
  - Platelet count decreased [Unknown]
  - Haemorrhage [Unknown]
  - Pancytopenia [Unknown]
  - Respiratory tract infection [Unknown]
  - Malaise [Unknown]
  - Wrong drug administered [Unknown]
